FAERS Safety Report 10908464 (Version 1)
Quarter: 2015Q1

REPORT INFORMATION
  Report Type: Spontaneous
  Country: FR (occurrence: FR)
  Receive Date: 20150312
  Receipt Date: 20150312
  Transmission Date: 20150721
  Serious: Yes (Death, Hospitalization, Other)
  Sender: FDA-Public Use
  Company Number: FR-DSJP-DSE-2015-100789

PATIENT

DRUGS (1)
  1. OLMETEC [Suspect]
     Active Substance: OLMESARTAN MEDOXOMIL
     Indication: HYPERTENSION
     Dosage: UNK
     Route: 048
     Dates: start: 20130408, end: 20131227

REACTIONS (16)
  - Weight decreased [Not Recovered/Not Resolved]
  - Gastrointestinal disorder [Not Recovered/Not Resolved]
  - Diarrhoea [Not Recovered/Not Resolved]
  - Diverticulitis [None]
  - Cholestasis [None]
  - Pulmonary embolism [Fatal]
  - Benign pancreatic neoplasm [None]
  - Hepatic steatosis [None]
  - Intestinal ischaemia [Fatal]
  - Pancreatic insufficiency [Fatal]
  - Dehydration [Not Recovered/Not Resolved]
  - Pneumatosis intestinalis [None]
  - Acute kidney injury [Fatal]
  - Intestinal villi atrophy [Not Recovered/Not Resolved]
  - Metabolic acidosis [Fatal]
  - Malabsorption [Not Recovered/Not Resolved]

NARRATIVE: CASE EVENT DATE: 2013
